FAERS Safety Report 11256417 (Version 4)
Quarter: 2015Q3

REPORT INFORMATION
  Report Type: Report from Study
  Country: DE (occurrence: IL)
  Receive Date: 20150709
  Receipt Date: 20150923
  Transmission Date: 20151125
  Serious: Yes (Hospitalization, Other)
  Sender: FDA-Public Use
  Company Number: DE-ACTELION-A-NJ2015-120683

PATIENT
  Age: 15 Year
  Sex: Male

DRUGS (3)
  1. VENTAVIS [Suspect]
     Active Substance: ILOPROST
     Indication: PULMONARY HYPERTENSION
     Dosage: 2.5 MCG, UNK
     Route: 055
     Dates: start: 20150624, end: 20150916
  2. VENTAVIS [Suspect]
     Active Substance: ILOPROST
     Dosage: 5 MCG, UNK
     Route: 055
     Dates: start: 20150706
  3. VENTAVIS [Suspect]
     Active Substance: ILOPROST
     Dosage: 2.5 MCG, UNK
     Route: 055

REACTIONS (17)
  - Erythema [Unknown]
  - Product use issue [Not Recovered/Not Resolved]
  - Fatigue [Not Recovered/Not Resolved]
  - Eye pain [Unknown]
  - Product use issue [Unknown]
  - Irritability [Recovered/Resolved]
  - Dehydration [Unknown]
  - Dizziness [Unknown]
  - General physical health deterioration [Unknown]
  - Tachycardia [Unknown]
  - Ocular discomfort [Unknown]
  - Head discomfort [Unknown]
  - Pyrexia [Unknown]
  - Ocular hyperaemia [Unknown]
  - Facial pain [Unknown]
  - Oxygen saturation decreased [Recovered/Resolved]
  - Asthenia [Unknown]

NARRATIVE: CASE EVENT DATE: 2015
